FAERS Safety Report 9877006 (Version 1)
Quarter: 2014Q1

REPORT INFORMATION
  Report Type: Spontaneous
  Country: DE (occurrence: None)
  Receive Date: 20140204
  Receipt Date: 20140204
  Transmission Date: 20141002
  Serious: No
  Sender: FDA-Public Use
  Company Number: AUR-APL-2014-01128

PATIENT
  Age: 79 Year
  Sex: Male
  Weight: 80 kg

DRUGS (3)
  1. AMOXICILLIN\CLAVULANIC ACID [Suspect]
     Indication: PNEUMONIA
     Dosage: 6 DOSAGES FORMS (2 DOSAGE FORMS, 3 IN 1 D), ORAL
     Route: 048
     Dates: start: 20140118, end: 20140119
  2. KLACID (CLARITHROMYCIN) [Concomitant]
  3. KLACID (CLARITHROMYCIN) [Concomitant]

REACTIONS (4)
  - Acute hepatic failure [None]
  - Renal failure acute [None]
  - Multi-organ failure [None]
  - Haemoglobin decreased [None]
